FAERS Safety Report 24259429 (Version 1)
Quarter: 2024Q3

REPORT INFORMATION
  Report Type: Spontaneous
  Country: US (occurrence: None)
  Receive Date: 20240828
  Receipt Date: 20240828
  Transmission Date: 20241017
  Serious: Yes (Hospitalization)
  Sender: Public
  Company Number: None

PATIENT
  Age: 61 Year
  Sex: Female

DRUGS (9)
  1. MYCOPHENOLIC ACID [Suspect]
     Active Substance: MYCOPHENOLIC ACID
     Indication: Renal transplant
     Dosage: FREQUENCY : TWICE A DAY;?
     Route: 048
     Dates: start: 20190220
  2. GENGRAF [Concomitant]
     Active Substance: CYCLOSPORINE
  3. IRON [Concomitant]
  4. LANSOPRAZOLE [Concomitant]
  5. LOPRESSOR [Concomitant]
  6. METOCLOPRAMIDE [Concomitant]
  7. PREVACID [Concomitant]
  8. REGLAN [Concomitant]
  9. ZOCOR [Concomitant]
     Active Substance: SIMVASTATIN

REACTIONS (3)
  - Hospitalisation [None]
  - Product availability issue [None]
  - Product dispensing issue [None]

NARRATIVE: CASE EVENT DATE: 20240801
